FAERS Safety Report 7807540-3 (Version None)
Quarter: 2011Q4

REPORT INFORMATION
  Report Type: 
  Country: None (occurrence: None)
  Receive Date: 20111011
  Receipt Date: 20111005
  Transmission Date: 20120403
  Serious: Yes (Other)
  Sender: FDA-Public Use
  Company Number: US-GLAXOSMITHKLINE-A0948342A

PATIENT
  Age: 69 Year
  Sex: Male
  Weight: 112.7 kg

DRUGS (3)
  1. GLIPIZIDE [Concomitant]
  2. AVANDIA [Suspect]
     Indication: DIABETES MELLITUS
     Route: 048
  3. SERTRALINE HYDROCHLORIDE [Concomitant]

REACTIONS (1)
  - MYOCARDIAL INFARCTION [None]
